FAERS Safety Report 6576026-9 (Version None)
Quarter: 2010Q1

REPORT INFORMATION
  Report Type: 
  Country: None (occurrence: None)
  Receive Date: 20100209
  Receipt Date: 20100128
  Transmission Date: 20100710
  Serious: Yes (Hospitalization)
  Sender: FDA-Public Use
  Company Number: PHHY2010FR04833

PATIENT
  Sex: Male

DRUGS (9)
  1. TAREG [Suspect]
     Dosage: 160 MG, QD
     Route: 048
  2. KETOPROFEN [Suspect]
     Indication: WOUND
     Dosage: 300 MG DAILY
     Route: 042
     Dates: start: 20080419, end: 20080429
  3. BRISTOPEN [Suspect]
     Indication: WOUND
     Dosage: 6 G DAILY
     Route: 042
     Dates: start: 20080419, end: 20080423
  4. FLAGYL [Suspect]
     Dosage: 1500 MG DAILY
     Route: 042
  5. SKENAN [Suspect]
     Indication: ANALGESIC THERAPY
     Dosage: 60 MG DAILY
     Dates: start: 20080419, end: 20080423
  6. BUFLOMEDIL [Concomitant]
     Dosage: 450 MG DAILY
  7. PLAVIX [Concomitant]
  8. INNOHEP [Concomitant]
     Dosage: 14000 IU
     Dates: start: 20080401
  9. PERFALGAN [Concomitant]
     Indication: ANALGESIC THERAPY
     Dosage: 10 MG/ML

REACTIONS (5)
  - CARDIOPULMONARY FAILURE [None]
  - RENAL FAILURE ACUTE [None]
  - SEPTIC SHOCK [None]
  - SUPERINFECTION [None]
  - WOUND [None]
